FAERS Safety Report 9281878 (Version 1)
Quarter: 2013Q2

REPORT INFORMATION
  Report Type: Spontaneous
  Country: NZ (occurrence: NZ)
  Receive Date: 20130510
  Receipt Date: 20130510
  Transmission Date: 20140414
  Serious: Yes (Hospitalization)
  Sender: FDA-Public Use
  Company Number: NZ-GE HEALTHCARE MEDICAL DIAGNOSTICS-VISP-PR-1305S-0605

PATIENT
  Age: 56 Year
  Sex: Male
  Weight: 94 kg

DRUGS (10)
  1. VISIPAQUE [Suspect]
     Indication: PRODUCT USED FOR UNKNOWN INDICATION
     Route: 022
     Dates: start: 20130430, end: 20130430
  2. VISIPAQUE [Suspect]
     Indication: DIAGNOSTIC PROCEDURE
  3. DURIDE [Concomitant]
  4. ATORVASTATIN [Concomitant]
  5. LEVOTHYROXINE [Concomitant]
  6. CLOPIDOGREL [Concomitant]
  7. MIDAZOLAM [Concomitant]
  8. ATIVAN [Concomitant]
  9. GTN [Concomitant]
  10. LIGNOCAINE [Concomitant]

REACTIONS (3)
  - Flushing [Recovered/Resolved]
  - Rash [Recovered/Resolved]
  - Periorbital oedema [Recovered/Resolved]
